FAERS Safety Report 24956595 (Version 1)
Quarter: 2025Q1

REPORT INFORMATION
  Report Type: Spontaneous
  Country: US (occurrence: US)
  Receive Date: 20250211
  Receipt Date: 20250211
  Transmission Date: 20250409
  Serious: No
  Sender: LEXICON PHARMACEUTICALS
  Company Number: US-LEX-000630

PATIENT
  Age: 69 Year
  Sex: Male
  Weight: 85.729 kg

DRUGS (10)
  1. INPEFA [Suspect]
     Active Substance: SOTAGLIFLOZIN
     Indication: Weight decreased
     Route: 048
     Dates: start: 20241121
  2. INPEFA [Suspect]
     Active Substance: SOTAGLIFLOZIN
     Indication: Weight decreased
     Route: 048
     Dates: start: 20241218, end: 202501
  3. INPEFA [Suspect]
     Active Substance: SOTAGLIFLOZIN
     Indication: Weight decreased
     Route: 048
     Dates: start: 20250110
  4. ALBUTEROL SULFATE [Concomitant]
     Active Substance: ALBUTEROL SULFATE
     Indication: Asthma
  5. ATORVASTATIN CALCIUM [Concomitant]
     Active Substance: ATORVASTATIN CALCIUM
  6. FLEXERIL [Concomitant]
     Active Substance: CYCLOBENZAPRINE HYDROCHLORIDE
  7. LEVOTHYROXINE SODIUM [Concomitant]
     Active Substance: LEVOTHYROXINE SODIUM
  8. LISINOPRIL [Concomitant]
     Active Substance: LISINOPRIL
  9. LYUMJEV [Concomitant]
     Active Substance: INSULIN LISPRO-AABC
  10. MONTELUKAST SODIUM [Concomitant]
     Active Substance: MONTELUKAST SODIUM

REACTIONS (6)
  - Visual impairment [Unknown]
  - Drug effective for unapproved indication [Unknown]
  - Eye disorder [Unknown]
  - Off label use [Unknown]
  - Therapy interrupted [Unknown]
  - Product use issue [Unknown]

NARRATIVE: CASE EVENT DATE: 20250101
